FAERS Safety Report 8927679 (Version 1)
Quarter: 2012Q4

REPORT INFORMATION
  Report Type: 
  Country: US (occurrence: US)
  Receive Date: 20121126
  Receipt Date: 20121126
  Transmission Date: 20130627
  Serious: Yes (Hospitalization)
  Sender: FDA-Public Use
  Company Number: US-MYLANLABS-2012S1023619

PATIENT
  Sex: Male

DRUGS (2)
  1. FENTANYL TRANSDERMAL SYSTEM [Suspect]
     Indication: BACK PAIN
     Dosage: Changed q48h
     Route: 062
     Dates: end: 201111
  2. FENTANYL TRANSDERMAL SYSTEM [Suspect]
     Indication: BACK PAIN
     Dosage: Changed q48h
     Route: 062
     Dates: start: 201111

REACTIONS (4)
  - Renal failure [Recovered/Resolved]
  - Drug withdrawal syndrome [Recovered/Resolved]
  - Pharyngeal oedema [Recovered/Resolved]
  - Drug administration error [None]
